FAERS Safety Report 6042485-3 (Version None)
Quarter: 2009Q1

REPORT INFORMATION
  Report Type: 
  Country: None (occurrence: None)
  Receive Date: 20090116
  Receipt Date: 20090114
  Transmission Date: 20090719
  Serious: Yes (Life-Threatening, Hospitalization, Other)
  Sender: FDA-Public Use
  Company Number: BE-AMGEN-UK320633

PATIENT
  Age: 80 Year
  Sex: Female

DRUGS (4)
  1. MIMPARA [Suspect]
     Indication: HYPERPARATHYROIDISM SECONDARY
     Route: 048
     Dates: start: 20070628
  2. SEVELAMER [Concomitant]
     Route: 048
  3. CALCIUM ACETATE [Concomitant]
     Route: 048
  4. ALFACALCIDOL [Concomitant]
     Route: 065

REACTIONS (7)
  - ANXIETY [None]
  - CALCIUM IONISED DECREASED [None]
  - CARDIAC ARREST [None]
  - CONVULSION [None]
  - ELECTROCARDIOGRAM QT PROLONGED [None]
  - GASTROINTESTINAL DISORDER [None]
  - LUNG INFECTION [None]
